FAERS Safety Report 25710599 (Version 2)
Quarter: 2025Q4

REPORT INFORMATION
  Report Type: Spontaneous
  Country: PE (occurrence: PE)
  Receive Date: 20250821
  Receipt Date: 20251009
  Transmission Date: 20260117
  Serious: Yes (Other)
  Sender: ROCHE
  Company Number: PE-ROCHE-10000365422

PATIENT
  Sex: Female

DRUGS (1)
  1. VABYSMO [Suspect]
     Active Substance: FARICIMAB-SVOA
     Indication: Age-related macular degeneration
     Dosage: FREQUENCY NOT REPORTED
     Route: 050

REACTIONS (7)
  - Product dose omission issue [Unknown]
  - Eye disorder [Unknown]
  - Reading disorder [Unknown]
  - Dry age-related macular degeneration [Unknown]
  - Eye operation [Unknown]
  - Oropharyngeal pain [Not Recovered/Not Resolved]
  - Ear disorder [Not Recovered/Not Resolved]
